FAERS Safety Report 19707277 (Version 1)
Quarter: 2021Q3

REPORT INFORMATION
  Report Type: Spontaneous
  Country: GB (occurrence: GB)
  Receive Date: 20210817
  Receipt Date: 20210817
  Transmission Date: 20211014
  Serious: Yes (Other)
  Sender: FDA-Public Use
  Company Number: GB-TEVA-2021-GB-1942699

PATIENT
  Age: 62 Year
  Sex: Female

DRUGS (3)
  1. VENTOLIN [Concomitant]
     Active Substance: ALBUTEROL SULFATE
     Indication: DYSPNOEA
     Dosage: 2 PUFFS AS REQUIRED FOR SHORTNESS OF BREATH.; AS NECESSARY, UNIT DOSE : 2 DOSAGE FORMS , PRN, INHALE
     Route: 055
  2. DEXAMETHASONE. [Suspect]
     Active Substance: DEXAMETHASONE
     Indication: ADRENAL GLAND INJURY
     Dosage: 1 ML DAILY; 1 ML, 10MG/5ML
     Route: 065
  3. FOLIC ACID. [Concomitant]
     Active Substance: FOLIC ACID
     Indication: ANAEMIA
     Dosage: 5 MILLIGRAM DAILY; 1 TABLET DAILY, STRENGTH : 5 MG

REACTIONS (14)
  - Irritable bowel syndrome [Unknown]
  - Fall [Unknown]
  - Somnolence [Unknown]
  - Fatigue [Unknown]
  - Vision blurred [Unknown]
  - Dyspnoea [Unknown]
  - Mental disorder [Unknown]
  - Asthenia [Unknown]
  - Pain in extremity [Unknown]
  - Gait inability [Unknown]
  - Myalgia [Unknown]
  - Incorrect dose administered [Unknown]
  - Malaise [Unknown]
  - Internal haemorrhage [Unknown]
